FAERS Safety Report 11877546 (Version 3)
Quarter: 2017Q1

REPORT INFORMATION
  Report Type: Report from Study
  Country: JP (occurrence: JP)
  Receive Date: 20151230
  Receipt Date: 20170302
  Transmission Date: 20170428
  Serious: Yes (Hospitalization, Other)
  Sender: FDA-Public Use
  Company Number: PHHY2011JP22100

PATIENT
  Age: 2 Year
  Sex: Male
  Weight: 9 kg

DRUGS (26)
  1. NEORAL [Suspect]
     Active Substance: CYCLOSPORINE
     Dosage: 115 MG, UNK
     Route: 065
     Dates: start: 20110411
  2. NEORAL [Suspect]
     Active Substance: CYCLOSPORINE
     Dosage: 105 MG, UNK
     Route: 065
     Dates: start: 20110509
  3. NEORAL [Suspect]
     Active Substance: CYCLOSPORINE
     Dosage: 110 MG, UNK
     Route: 048
     Dates: start: 20141020, end: 20150914
  4. NEORAL [Suspect]
     Active Substance: CYCLOSPORINE
     Dosage: 90 MG, UNK
     Route: 048
     Dates: start: 20160517
  5. NEORAL [Suspect]
     Active Substance: CYCLOSPORINE
     Dosage: 115 MG, UNK
     Route: 065
     Dates: start: 20110803
  6. BAKTAR [Concomitant]
     Active Substance: SULFAMETHOXAZOLE\TRIMETHOPRIM
     Dosage: 0.5 G, UNK
     Route: 048
     Dates: start: 20130521
  7. CERTICAN [Suspect]
     Active Substance: EVEROLIMUS
     Dosage: 0.5 MG, QD
     Route: 048
     Dates: start: 20080818
  8. CERTICAN [Suspect]
     Active Substance: EVEROLIMUS
     Dosage: 0.75 MG, UNK
     Route: 048
     Dates: start: 20150804, end: 20160720
  9. NEORAL [Suspect]
     Active Substance: CYCLOSPORINE
     Dosage: 95 MG, UNK
     Route: 065
     Dates: start: 20080526, end: 20080713
  10. NEORAL [Suspect]
     Active Substance: CYCLOSPORINE
     Dosage: 90 MG, QD
     Route: 048
     Dates: start: 20081026, end: 20090104
  11. NEORAL [Suspect]
     Active Substance: CYCLOSPORINE
     Dosage: 105 MG, QD
     Route: 048
     Dates: start: 20090105, end: 20090201
  12. NEORAL [Suspect]
     Active Substance: CYCLOSPORINE
     Dosage: 95 MG, QD
     Route: 048
     Dates: start: 20090202, end: 20090712
  13. NEORAL [Suspect]
     Active Substance: CYCLOSPORINE
     Dosage: UNK
     Route: 048
     Dates: start: 20111020
  14. NEORAL [Suspect]
     Active Substance: CYCLOSPORINE
     Indication: PRODUCT USED FOR UNKNOWN INDICATION
     Dosage: 90 MG, UNK
     Route: 065
     Dates: start: 20080521, end: 20080525
  15. NEORAL [Suspect]
     Active Substance: CYCLOSPORINE
     Dosage: 105 MG, UNK
     Route: 048
     Dates: start: 20090713, end: 20110410
  16. NEORAL [Suspect]
     Active Substance: CYCLOSPORINE
     Dosage: 120 MG, UNK
     Route: 048
     Dates: start: 20130423, end: 20130527
  17. NEORAL [Suspect]
     Active Substance: CYCLOSPORINE
     Dosage: 100 MG, UNK
     Route: 048
     Dates: start: 20140519, end: 20141019
  18. CERTICAN [Suspect]
     Active Substance: EVEROLIMUS
     Dosage: 1 MG, UNK
     Route: 048
     Dates: start: 20160721
  19. NEORAL [Suspect]
     Active Substance: CYCLOSPORINE
     Dosage: 100 MG, UNK
     Route: 065
     Dates: start: 20080714, end: 20080817
  20. NEORAL [Suspect]
     Active Substance: CYCLOSPORINE
     Dosage: 105 MG, QD
     Route: 048
     Dates: start: 20080818, end: 20081025
  21. NEORAL [Suspect]
     Active Substance: CYCLOSPORINE
     Dosage: 120 MG, UNK
     Route: 048
     Dates: start: 20120131, end: 20120513
  22. BAKTAR [Concomitant]
     Active Substance: SULFAMETHOXAZOLE\TRIMETHOPRIM
     Indication: PROPHYLAXIS
     Dosage: 0.5 G, UNK
     Route: 048
     Dates: start: 20080818
  23. CERTICAN [Suspect]
     Active Substance: EVEROLIMUS
     Dosage: 0.5 MG, UNK
     Route: 048
     Dates: start: 20130521, end: 20150803
  24. NEORAL [Suspect]
     Active Substance: CYCLOSPORINE
     Dosage: 100 MG, UNK
     Route: 048
     Dates: start: 20150915, end: 20160516
  25. CERTICAN [Suspect]
     Active Substance: EVEROLIMUS
     Indication: HEART TRANSPLANT
     Dosage: 0.5 MG, UNK
     Route: 048
     Dates: start: 20080521
  26. NEORAL [Suspect]
     Active Substance: CYCLOSPORINE
     Dosage: 110 MG, UNK
     Route: 048
     Dates: start: 20130528, end: 20140518

REACTIONS (8)
  - Diarrhoea [Unknown]
  - Aspartate aminotransferase increased [Unknown]
  - Hyperlipidaemia [Not Recovered/Not Resolved]
  - Gastroenteritis [Recovered/Resolved]
  - Blood alkaline phosphatase increased [Unknown]
  - Blood urea increased [Unknown]
  - Dehydration [Unknown]
  - Hypertension [Recovering/Resolving]

NARRATIVE: CASE EVENT DATE: 20080521
